FAERS Safety Report 5692245-8 (Version None)
Quarter: 2008Q1

REPORT INFORMATION
  Report Type: 
  Country: None (occurrence: None)
  Receive Date: 20080331
  Receipt Date: 20080320
  Transmission Date: 20080703
  Serious: Yes (Other)
  Sender: FDA-Public Use
  Company Number: CHNY2008DE01332

PATIENT
  Sex: Male

DRUGS (1)
  1. OTRIVIN [Suspect]
     Dosage: NASAL
     Route: 045

REACTIONS (2)
  - HYPERSENSITIVITY [None]
  - INTENTIONAL DRUG MISUSE [None]
